FAERS Safety Report 7860631-3 (Version None)
Quarter: 2011Q4

REPORT INFORMATION
  Report Type: 
  Country: None (occurrence: None)
  Receive Date: 20111027
  Receipt Date: 20111018
  Transmission Date: 20120403
  Serious: Yes (Other)
  Sender: FDA-Public Use
  Company Number: US-ASTRAZENECA-2011SE62649

PATIENT
  Age: 76 Year
  Weight: 72.6 kg

DRUGS (5)
  1. CRESTOR [Suspect]
     Route: 048
  2. COREG [Concomitant]
     Indication: HYPERTENSION
  3. GLEMOCORIDE [Concomitant]
     Indication: DIABETES MELLITUS
  4. ANALAPRO [Concomitant]
     Indication: HYPERTENSION
  5. GENEUVIA [Concomitant]
     Indication: DIABETES MELLITUS

REACTIONS (1)
  - PELVIC FRACTURE [None]
